FAERS Safety Report 7867329-6 (Version None)
Quarter: 2011Q4

REPORT INFORMATION
  Report Type: 
  Country: None (occurrence: None)
  Receive Date: 20111028
  Receipt Date: 20111025
  Transmission Date: 20120403
  Serious: Yes (Death)
  Sender: FDA-Public Use
  Company Number: US-PFIZER INC-2011258752

PATIENT
  Sex: Male
  Weight: 64.9 kg

DRUGS (6)
  1. MORPHINE SULFATE [Concomitant]
     Route: 058
  2. PROCHLORPERAZINE [Concomitant]
     Route: 048
  3. XELODA [Suspect]
     Dosage: 1000 MG AM, 1500 MG PM 7 DAYS ON/7 DAYS OFF
     Dates: start: 20111017, end: 20111024
  4. TEMSIROLIMUS [Suspect]
     Dosage: 25 MG, UNK
     Dates: start: 20111017, end: 20111024
  5. TERAZOSIN HYDROCHLORIDE [Concomitant]
     Route: 048
  6. ZOLPIDEM [Concomitant]
     Route: 048

REACTIONS (1)
  - DEATH [None]
